FAERS Safety Report 9859828 (Version 1)
Quarter: 2014Q1

REPORT INFORMATION
  Report Type: Report from Study
  Country: US (occurrence: US)
  Receive Date: 20140131
  Receipt Date: 20140131
  Transmission Date: 20141002
  Serious: Yes (Other)
  Sender: FDA-Public Use
  Company Number: US-ABBVIE-14P-163-1195178-00

PATIENT
  Sex: Male
  Weight: 99.88 kg

DRUGS (2)
  1. ANDROGEL [Suspect]
     Indication: BLOOD TESTOSTERONE DECREASED
     Dosage: 40.5 MG IN AM AND 40.5 MG PM
     Dates: start: 2012, end: 201312
  2. ANDROGEL [Suspect]
     Dosage: 20.25MG IN AM, 20,25 MG IN PM
     Dates: start: 201312

REACTIONS (5)
  - Ligament rupture [Not Recovered/Not Resolved]
  - Lipoma [Not Recovered/Not Resolved]
  - Pollakiuria [Not Recovered/Not Resolved]
  - Abdominal discomfort [Not Recovered/Not Resolved]
  - Blood testosterone increased [Unknown]
